FAERS Safety Report 16720369 (Version 1)
Quarter: 2019Q4

REPORT INFORMATION
  Report Type: Spontaneous
  Country: US (occurrence: US)
  Receive Date: 20190819
  Receipt Date: 20190819
  Transmission Date: 20200122
  Serious: Yes (Other)
  Sender: FDA-Public Use
  Company Number: None

PATIENT
  Age: 65 Year
  Sex: Female
  Weight: 59.2 kg

DRUGS (17)
  1. HYCAMTIN [Suspect]
     Active Substance: TOPOTECAN HYDROCHLORIDE
     Indication: LUNG NEOPLASM MALIGNANT
     Dosage: ?          OTHER FREQUENCY:EVERY 3 WEEKS;?
     Route: 048
     Dates: start: 20190717
  2. DILAUDID [Concomitant]
     Active Substance: HYDROMORPHONE HYDROCHLORIDE
  3. FENTANYL. [Concomitant]
     Active Substance: FENTANYL
  4. ZANAFLEX [Concomitant]
     Active Substance: TIZANIDINE HYDROCHLORIDE
  5. HYCAMTIN [Suspect]
     Active Substance: TOPOTECAN HYDROCHLORIDE
     Indication: LUNG NEOPLASM MALIGNANT
     Dosage: ?          OTHER FREQUENCY:EVERY 3 WEEKS;?
     Route: 048
     Dates: start: 20190717
  6. SENNA [Concomitant]
     Active Substance: SENNA LEAF\SENNOSIDES\SENNOSIDES A AND B
  7. SEROQUEL [Concomitant]
     Active Substance: QUETIAPINE FUMARATE
  8. PRILOSEC [Concomitant]
     Active Substance: OMEPRAZOLE MAGNESIUM
  9. AMITRIPTYLINE [Concomitant]
     Active Substance: AMITRIPTYLINE
  10. ONDANSETRON [Concomitant]
     Active Substance: ONDANSETRON
  11. MEDICAL MARIJUANA [Concomitant]
     Active Substance: CANNABIS SATIVA SUBSP. INDICA TOP
  12. CYMBALTA [Concomitant]
     Active Substance: DULOXETINE HYDROCHLORIDE
  13. RANITIDINE. [Concomitant]
     Active Substance: RANITIDINE
  14. SYMBIOCRT [Concomitant]
  15. METOPROLOL. [Concomitant]
     Active Substance: METOPROLOL
  16. COLACE [Concomitant]
     Active Substance: DOCUSATE SODIUM
  17. XANAX [Concomitant]
     Active Substance: ALPRAZOLAM

REACTIONS (1)
  - Hospice care [None]

NARRATIVE: CASE EVENT DATE: 20190819
